FAERS Safety Report 25393830 (Version 1)
Quarter: 2025Q2

REPORT INFORMATION
  Report Type: Report from Study
  Country: IT (occurrence: IT)
  Receive Date: 20250604
  Receipt Date: 20250604
  Transmission Date: 20250717
  Serious: Yes (Hospitalization)
  Sender: TEVA
  Company Number: IT-TEVA-VS-3337055

PATIENT
  Age: 20 Year
  Sex: Male
  Weight: 83 kg

DRUGS (7)
  1. CITALOPRAM [Suspect]
     Active Substance: CITALOPRAM
     Indication: Antidepressant therapy
     Route: 065
  2. CITALOPRAM [Suspect]
     Active Substance: CITALOPRAM
     Indication: Antidepressant therapy
     Route: 065
  3. QUETIAPINE [Suspect]
     Active Substance: QUETIAPINE
     Indication: Mental disorder
     Route: 065
  4. QUETIAPINE [Suspect]
     Active Substance: QUETIAPINE
     Indication: Mental disorder
     Route: 065
  5. DELORAZEPAM [Suspect]
     Active Substance: DELORAZEPAM
     Indication: Mental disorder
     Route: 065
  6. PREGABALIN [Suspect]
     Active Substance: PREGABALIN
     Indication: Mental disorder
     Route: 065
  7. VORTIOXETINE [Suspect]
     Active Substance: VORTIOXETINE
     Indication: Antidepressant therapy
     Route: 065

REACTIONS (1)
  - Serotonin syndrome [Unknown]
